FAERS Safety Report 9087067 (Version 1)
Quarter: 2013Q1

REPORT INFORMATION
  Report Type: Spontaneous
  Country: FR (occurrence: FR)
  Receive Date: 20130217
  Receipt Date: 20130217
  Transmission Date: 20140127
  Serious: Yes (Hospitalization)
  Sender: FDA-Public Use
  Company Number: FR-JNJFOC-20130115420

PATIENT
  Sex: Female

DRUGS (2)
  1. RISPERDAL CONSTA [Suspect]
     Indication: PRODUCT USED FOR UNKNOWN INDICATION
     Route: 030
     Dates: start: 201301, end: 201301
  2. NEUROLEPTIC DRUGS NOS [Concomitant]
     Route: 065

REACTIONS (4)
  - Drug administration error [Unknown]
  - Overdose [Unknown]
  - Intentional drug misuse [Unknown]
  - Rash [Unknown]
